FAERS Safety Report 18285052 (Version 2)
Quarter: 2020Q3

REPORT INFORMATION
  Report Type: Spontaneous
  Country: US (occurrence: US)
  Receive Date: 20200918
  Receipt Date: 20200923
  Transmission Date: 20201103
  Serious: No
  Sender: FDA-Public Use
  Company Number: US-PFIZER INC-2020355396

PATIENT
  Age: 70 Year
  Sex: Male
  Weight: 54.43 kg

DRUGS (3)
  1. LYRICA [Suspect]
     Active Substance: PREGABALIN
     Indication: EPIPHYSITIS
     Dosage: 300 MG, 1X/DAY (ONCE AT NIGHT BY MOUTH)
     Route: 048
     Dates: start: 202005
  2. PREGABALIN. [Suspect]
     Active Substance: PREGABALIN
     Dosage: 300 MG, DAILY, (AT NIGHT)
     Route: 048
  3. PREGABALIN. [Suspect]
     Active Substance: PREGABALIN
     Indication: EPIPHYSITIS
     Dosage: UNK
     Route: 048
     Dates: start: 202005

REACTIONS (3)
  - Off label use [Unknown]
  - Therapeutic product effect incomplete [Unknown]
  - Product use in unapproved indication [Unknown]
